FAERS Safety Report 9322016 (Version 1)
Quarter: 2013Q2

REPORT INFORMATION
  Report Type: Spontaneous
  Country: US (occurrence: None)
  Receive Date: 20130530
  Receipt Date: 20130530
  Transmission Date: 20140414
  Serious: Yes (Other)
  Sender: FDA-Public Use
  Company Number: None

PATIENT
  Age: 32 Year
  Sex: Male

DRUGS (1)
  1. SUTENT [Suspect]
     Dosage: 37.5 MG DAILY ORAL
     Route: 048
     Dates: start: 20130116

REACTIONS (3)
  - Local swelling [None]
  - Nausea [None]
  - Hair colour changes [None]
